FAERS Safety Report 6865654-9 (Version None)
Quarter: 2010Q3

REPORT INFORMATION
  Report Type: 
  Country: None (occurrence: None)
  Receive Date: 20100721
  Receipt Date: 20080603
  Transmission Date: 20110219
  Serious: No
  Sender: FDA-Public Use
  Company Number: US-PFIZER INC-2008037598

PATIENT
  Sex: Female
  Weight: 95.909 kg

DRUGS (6)
  1. CHANTIX [Suspect]
     Indication: SMOKING CESSATION THERAPY
     Route: 048
     Dates: start: 20080419
  2. BUSPIRONE [Concomitant]
     Route: 048
  3. NEXIUM [Concomitant]
     Route: 048
  4. SIMVASTATIN [Concomitant]
     Route: 048
  5. VALSARTAN [Concomitant]
     Route: 048
  6. ANTIHYPERTENSIVES [Concomitant]

REACTIONS (4)
  - BURNING SENSATION [None]
  - DYSGEUSIA [None]
  - GLOSSODYNIA [None]
  - ORAL DISCOMFORT [None]
